FAERS Safety Report 9759089 (Version 1)
Quarter: 2013Q4

REPORT INFORMATION
  Report Type: Spontaneous
  Country: US (occurrence: None)
  Receive Date: 20131216
  Receipt Date: 20131216
  Transmission Date: 20140711
  Serious: Yes (Other)
  Sender: FDA-Public Use
  Company Number: 163-21880-12110978(0)

PATIENT
  Age: 72 Year
  Sex: Female
  Weight: 77 kg

DRUGS (1)
  1. REVLIMID (LENALIDOMIDE) (5 MILLIGRAM CAPSULES) [Suspect]
     Indication: MYELODYSPLASTIC SYNDROME
     Dosage: 5 MG, 1 IN 1 D, PO?5 MG, 21 IN 21 D , PO ?5 MG, 1 IN 1 D , PO ?2.1429 MG, 3 IN 1 WK, PO ?5 MG, 1 IN

REACTIONS (1)
  - Neutropenia [None]
